FAERS Safety Report 17719573 (Version 3)
Quarter: 2022Q1

REPORT INFORMATION
  Report Type: Spontaneous
  Country: CA (occurrence: CA)
  Receive Date: 20200428
  Receipt Date: 20220124
  Transmission Date: 20220423
  Serious: Yes (Hospitalization, Other)
  Sender: FDA-Public Use
  Company Number: CA-AMICUS THERAPEUTICS, INC.-AMI_495

PATIENT
  Age: 66 Year
  Sex: Male
  Weight: 6.5 kg

DRUGS (7)
  1. GALAFOLD [Suspect]
     Active Substance: MIGALASTAT HYDROCHLORIDE
     Indication: Fabry^s disease
     Dosage: 123 MILLIGRAM, QOD
     Route: 048
     Dates: start: 20190615
  2. PROPYLTHIOURACIL [Concomitant]
     Active Substance: PROPYLTHIOURACIL
     Indication: Product used for unknown indication
     Dosage: UNK
     Route: 065
     Dates: start: 20190201
  3. TAMSULOSIN [Concomitant]
     Active Substance: TAMSULOSIN
     Indication: Product used for unknown indication
     Dosage: 0.4 MILLIGRAM, QD
     Route: 065
     Dates: start: 201711
  4. ATORVASTATIN [Concomitant]
     Active Substance: ATORVASTATIN
     Indication: Product used for unknown indication
     Dosage: 10 MILLIGRAM, QD
     Route: 065
  5. HYDROCHLOROTHIAZIDE [Concomitant]
     Active Substance: HYDROCHLOROTHIAZIDE
     Indication: Product used for unknown indication
     Dosage: 12.5 MILLIGRAM, QD
     Route: 065
  6. ASPIRIN [Concomitant]
     Active Substance: ASPIRIN
     Indication: Product used for unknown indication
     Dosage: 81 MILLIGRAM, QD
     Route: 065
     Dates: start: 201711
  7. VALSARTAN [Concomitant]
     Active Substance: VALSARTAN
     Indication: Product used for unknown indication
     Dosage: 80 MILLIGRAM, QD
     Route: 065
     Dates: start: 201712

REACTIONS (26)
  - Heart rate decreased [Recovered/Resolved]
  - Hyperthyroidism [Recovering/Resolving]
  - Ventricular hypokinesia [Unknown]
  - Tricuspid valve incompetence [Unknown]
  - Pulmonary valve incompetence [Unknown]
  - Mitral valve incompetence [Unknown]
  - Inferior vena cava dilatation [Unknown]
  - Goitre [Recovering/Resolving]
  - Poor quality sleep [Recovering/Resolving]
  - Hypohidrosis [Recovering/Resolving]
  - Weight decreased [Recovering/Resolving]
  - Vision blurred [Recovering/Resolving]
  - Angiokeratoma [Recovering/Resolving]
  - Urine albumin/creatinine ratio increased [Unknown]
  - Sinus bradycardia [Unknown]
  - Protein urine present [Recovered/Resolved]
  - Left ventricular hypertrophy [Unknown]
  - Ventricular dyskinesia [Unknown]
  - Right ventricular enlargement [Unknown]
  - Right atrial enlargement [Unknown]
  - Initial insomnia [Recovering/Resolving]
  - Product dose omission issue [Recovered/Resolved]
  - Pain [Recovering/Resolving]
  - Rash [Recovering/Resolving]
  - Fatigue [Recovering/Resolving]
  - Pruritus [Recovered/Resolved]

NARRATIVE: CASE EVENT DATE: 20190619
